FAERS Safety Report 16270772 (Version 1)
Quarter: 2019Q2

REPORT INFORMATION
  Report Type: Spontaneous
  Country: US (occurrence: US)
  Receive Date: 20190505
  Receipt Date: 20190505
  Transmission Date: 20190711
  Serious: No
  Sender: FDA-Public Use
  Company Number: US-JNJFOC-20190428268

PATIENT
  Sex: Female

DRUGS (5)
  1. TYLENOL [Suspect]
     Active Substance: ACETAMINOPHEN
     Route: 048
  2. MOTRIN [Suspect]
     Active Substance: IBUPROFEN
     Indication: PAIN
     Route: 048
     Dates: start: 201904, end: 201904
  3. XARELTO [Suspect]
     Active Substance: RIVAROXABAN
     Indication: DEEP VEIN THROMBOSIS
     Route: 048
     Dates: start: 20190414
  4. TYLENOL [Suspect]
     Active Substance: ACETAMINOPHEN
     Indication: PAIN
     Route: 048
     Dates: start: 201904, end: 201904
  5. MOTRIN [Suspect]
     Active Substance: IBUPROFEN
     Route: 048

REACTIONS (1)
  - Pain [Not Recovered/Not Resolved]

NARRATIVE: CASE EVENT DATE: 20190415
